FAERS Safety Report 16324939 (Version 2)
Quarter: 2019Q2

REPORT INFORMATION
  Report Type: Spontaneous
  Country: US (occurrence: US)
  Receive Date: 20190517
  Receipt Date: 20190520
  Transmission Date: 20190711
  Serious: Yes (Other)
  Sender: FDA-Public Use
  Company Number: US-ALLERGAN-1917264US

PATIENT
  Sex: Male

DRUGS (1)
  1. SAPHRIS [Suspect]
     Active Substance: ASENAPINE MALEATE
     Indication: AFFECTIVE DISORDER
     Dosage: UNK, QD (2.5 UNIT UNKNOWN)
     Route: 060
     Dates: start: 201904

REACTIONS (4)
  - Hallucination [Recovered/Resolved]
  - Off label use [Unknown]
  - Abnormal behaviour [Recovered/Resolved]
  - Anxiety [Recovered/Resolved]

NARRATIVE: CASE EVENT DATE: 201904
